FAERS Safety Report 10984929 (Version 7)
Quarter: 2016Q2

REPORT INFORMATION
  Report Type: Report from Study
  Country: CN (occurrence: CN)
  Receive Date: 20150403
  Receipt Date: 20160428
  Transmission Date: 20160815
  Serious: Yes (Hospitalization)
  Sender: FDA-Public Use
  Company Number: CN-AMGEN-CHNCT2015031167

PATIENT
  Age: 78 Year
  Sex: Male
  Weight: 59 kg

DRUGS (17)
  1. CEFTAZIDIME. [Concomitant]
     Active Substance: CEFTAZIDIME
     Indication: RESPIRATORY TRACT INFECTION
     Dosage: 1-3 G, UNK
     Route: 042
     Dates: start: 20150315, end: 20150319
  2. AMMONIUM ACETATE. [Concomitant]
     Active Substance: AMMONIUM ACETATE
     Indication: ANTITUSSIVE THERAPY
     Dosage: 10 ML, TID
     Route: 048
     Dates: start: 20150316, end: 20150319
  3. MOXIFLOXACIN HYDROCHLORIDE. [Concomitant]
     Active Substance: MOXIFLOXACIN HYDROCHLORIDE
     Indication: INFECTION
     Dosage: 0.4 G, QD
     Route: 048
     Dates: start: 20150317
  4. CETYLPYRIDINIUM CHLORIDE. [Concomitant]
     Active Substance: CETYLPYRIDINIUM CHLORIDE
     Indication: ORAL DISORDER
     Dosage: 60 ML, TID
     Route: 048
     Dates: start: 20150323, end: 20150326
  5. GLYCYRRHIZAE [Concomitant]
     Indication: COUGH
     Dosage: 20-30 ML, UNK
     Route: 048
     Dates: start: 20150316
  6. LOXOPROFEN SODIUM [Concomitant]
     Active Substance: LOXOPROFEN SODIUM
     Indication: PAIN
     Dosage: 30 MG, AS NECESSARY
     Route: 048
     Dates: start: 20150316, end: 20150316
  7. FINASTERIDE. [Concomitant]
     Active Substance: FINASTERIDE
     Indication: BENIGN PROSTATIC HYPERPLASIA
     Dosage: 5 MG, QD
     Route: 048
     Dates: start: 20150324, end: 20150326
  8. CARFILZOMIB [Suspect]
     Active Substance: CARFILZOMIB
     Indication: PLASMA CELL MYELOMA
     Dosage: 27 MG/M2, PER CHEMO REGIM
     Route: 042
     Dates: start: 20150324
  9. LOXONIN [Concomitant]
     Active Substance: LOXOPROFEN SODIUM
     Indication: ANTIINFLAMMATORY THERAPY
     Dosage: 30 MG, UNK
     Route: 048
     Dates: start: 20150316, end: 20150316
  10. POTASSIUM PERMANGANATE [Concomitant]
     Active Substance: POTASSIUM PERMANGANATE
     Indication: INFECTION
     Dosage: 0.1 G, TID
     Route: 050
     Dates: start: 20150323
  11. PREDNISONE. [Suspect]
     Active Substance: PREDNISONE
     Indication: PLASMA CELL MYELOMA
     Dosage: 100 MG, PER CHEMO REGIM
     Route: 048
     Dates: start: 20150324
  12. CEFTAZIDIME. [Concomitant]
     Active Substance: CEFTAZIDIME
     Indication: ABDOMINAL INFECTION
  13. DEXAMETHASONE SODIUM PHOSPHATE. [Concomitant]
     Active Substance: DEXAMETHASONE SODIUM PHOSPHATE
     Dosage: 2 MG, UNK
     Route: 042
     Dates: start: 20150314, end: 20150314
  14. ALLOPURINOL. [Concomitant]
     Active Substance: ALLOPURINOL
     Indication: HYPERURICAEMIA
     Dosage: 0.3 G, TID
     Route: 048
     Dates: start: 20150323
  15. SODIUM CHLORIDE. [Concomitant]
     Active Substance: SODIUM CHLORIDE
     Indication: TISSUE SEALING
     Dosage: 200 - 300 ML, UNK
     Route: 042
     Dates: start: 20150315, end: 20150401
  16. MELPHALAN [Suspect]
     Active Substance: MELPHALAN
     Indication: PLASMA CELL MYELOMA
     Dosage: 10 MG, PER CHEMO REGIM
     Route: 048
     Dates: start: 20150324
  17. SODIUM BICARBONATE. [Concomitant]
     Active Substance: SODIUM BICARBONATE
     Indication: ABDOMINAL PAIN UPPER
     Dosage: 1.5 MG, TID
     Route: 048
     Dates: start: 20150323

REACTIONS (1)
  - Cholecystitis acute [Recovered/Resolved]

NARRATIVE: CASE EVENT DATE: 20150326
